FAERS Safety Report 15218240 (Version 2)
Quarter: 2018Q3

REPORT INFORMATION
  Report Type: Spontaneous
  Country: US (occurrence: US)
  Receive Date: 20180730
  Receipt Date: 20180912
  Transmission Date: 20181010
  Serious: Yes (Hospitalization, Other)
  Sender: FDA-Public Use
  Company Number: US-BRISTOL-MYERS SQUIBB COMPANY-BMS-2018-068283

PATIENT
  Age: 57 Year
  Sex: Male

DRUGS (1)
  1. DASATINIB. [Suspect]
     Active Substance: DASATINIB
     Indication: CHRONIC MYELOID LEUKAEMIA
     Dosage: UNKNOWN
     Route: 065
     Dates: start: 2013

REACTIONS (4)
  - Klebsiella infection [Recovering/Resolving]
  - Empyema [Recovering/Resolving]
  - Pleural effusion [Unknown]
  - Chylothorax [Unknown]

NARRATIVE: CASE EVENT DATE: 20180716
